FAERS Safety Report 9298097 (Version 1)
Quarter: 2012Q4

REPORT INFORMATION
  Report Type: Spontaneous
  Country: GB (occurrence: None)
  Receive Date: 20121023
  Receipt Date: 20121023
  Transmission Date: 20130627
  Serious: Yes (Other)
  Sender: FDA-Public Use
  Company Number: HRA-CDB20120153

PATIENT
  Age: 31 Year
  Sex: Female

DRUGS (1)
  1. ULIPRISTAL ACETATE [Suspect]
     Indication: POST COITAL CONTRACEPTION
     Dates: start: 20111118, end: 20111118

REACTIONS (6)
  - Unintended pregnancy [None]
  - Breech presentation [None]
  - Dyspnoea [None]
  - Iron deficiency anaemia [None]
  - Caesarean section [None]
  - Exposure during pregnancy [None]
